FAERS Safety Report 4952091-7 (Version None)
Quarter: 2006Q1

REPORT INFORMATION
  Report Type: 
  Country: None (occurrence: None)
  Receive Date: 20060323
  Receipt Date: 20060314
  Transmission Date: 20060701
  Serious: Yes (Other)
  Sender: FDA-Public Use
  Company Number: 2006GB00458

PATIENT
  Age: 50 Year
  Sex: Male
  Weight: 76 kg

DRUGS (5)
  1. LISINOPRIL [Suspect]
     Indication: HYPERTENSION
     Route: 048
     Dates: start: 20050401, end: 20060214
  2. CARBIMAZOLE [Concomitant]
     Indication: BASEDOW'S DISEASE
     Route: 048
  3. THYROXINE [Concomitant]
     Indication: BASEDOW'S DISEASE
     Route: 048
     Dates: start: 20040401
  4. PROPRANOLOL [Concomitant]
     Indication: BASEDOW'S DISEASE
     Route: 048
     Dates: start: 20040401
  5. BENDROFLUAZIDE [Concomitant]
     Indication: HYPERTENSION
     Route: 048

REACTIONS (3)
  - MOBILITY DECREASED [None]
  - MUSCULOSKELETAL CHEST PAIN [None]
  - MUSCULOSKELETAL STIFFNESS [None]
